FAERS Safety Report 4417639-X (Version None)
Quarter: 2004Q2

REPORT INFORMATION
  Report Type: 
  Country: None (occurrence: None)
  Receive Date: 20040625
  Receipt Date: 20040521
  Transmission Date: 20050107
  Serious: Yes (Other)
  Sender: FDA-Public Use
  Company Number: 206730

PATIENT
  Age: 59 Year
  Sex: Female

DRUGS (1)
  1. AVASTIN [Suspect]
     Indication: COLORECTAL CANCER METASTATIC
     Dosage: 5MG/KG, UNK; INTRAVENOUS
     Route: 042
     Dates: start: 20040413

REACTIONS (1)
  - DEEP VEIN THROMBOSIS [None]
